FAERS Safety Report 9765498 (Version 1)
Quarter: 2013Q4

REPORT INFORMATION
  Report Type: Spontaneous
  Country: US (occurrence: US)
  Receive Date: 20131217
  Receipt Date: 20131217
  Transmission Date: 20140711
  Serious: No
  Sender: FDA-Public Use
  Company Number: US-GLAXOSMITHKLINE-A1007537A

PATIENT
  Age: 59 Year
  Sex: Female
  Weight: 98 kg

DRUGS (6)
  1. VOTRIENT [Suspect]
     Indication: PRODUCT USED FOR UNKNOWN INDICATION
     Dosage: 200MG SEE DOSAGE TEXT
     Route: 048
  2. ATIVAN [Concomitant]
     Route: 048
  3. ATENOLOL [Concomitant]
     Route: 048
  4. CITALOPRAM [Concomitant]
     Route: 048
  5. DIPHEN/ATROP [Concomitant]
     Route: 048
  6. ZOFRAN [Concomitant]
     Route: 048

REACTIONS (4)
  - Fatigue [Unknown]
  - Increased tendency to bruise [Unknown]
  - Diarrhoea [Unknown]
  - Nausea [Unknown]
